FAERS Safety Report 19958073 (Version 1)
Quarter: 2021Q4

REPORT INFORMATION
  Report Type: Report from Study
  Country: US (occurrence: US)
  Receive Date: 20211015
  Receipt Date: 20211015
  Transmission Date: 20220303
  Serious: Yes (Death, Hospitalization)
  Sender: FDA-Public Use
  Company Number: US-BAYER-2021-214005

PATIENT
  Age: 88 Year
  Sex: Male

DRUGS (1)
  1. XOFIGO [Suspect]
     Active Substance: RADIUM RA-223 DICHLORIDE
     Indication: Hormone-refractory prostate cancer
     Dosage: 153.70 ?CI, Q4WK
     Route: 042
     Dates: start: 20210415, end: 20210809

REACTIONS (2)
  - Death [Fatal]
  - Hospitalisation [Unknown]
